FAERS Safety Report 5171937-3 (Version None)
Quarter: 2006Q4

REPORT INFORMATION
  Report Type: 
  Country: None (occurrence: None)
  Receive Date: 20061205
  Receipt Date: 20061121
  Transmission Date: 20070319
  Serious: Yes (Hospitalization)
  Sender: FDA-Public Use
  Company Number: 2006-03023

PATIENT
  Age: 79 Year
  Sex: Female

DRUGS (8)
  1. VELCADE [Suspect]
     Indication: MULTIPLE MYELOMA
     Dates: start: 20030527, end: 20030801
  2. VELCADE [Suspect]
     Indication: MULTIPLE MYELOMA
     Dates: start: 20050111, end: 20051001
  3. ZOMETA [Concomitant]
  4. ARANESP [Concomitant]
  5. DARVOCET-N 100 [Concomitant]
  6. ESTRATEST [Concomitant]
  7. MULTIVITAMINS (ERGOCALCIFEROL, ASCORBIC ACID, PANTHENOL, NICOTINAMIDE, [Concomitant]
  8. ASPIRIN [Concomitant]

REACTIONS (10)
  - ASTHENIA [None]
  - AUTONOMIC NEUROPATHY [None]
  - BLOOD PRESSURE INCREASED [None]
  - DECREASED APPETITE [None]
  - DIARRHOEA [None]
  - HERPES ZOSTER [None]
  - HYPOVOLAEMIA [None]
  - NEUROPATHY PERIPHERAL [None]
  - THERAPY NON-RESPONDER [None]
  - WEIGHT DECREASED [None]
